FAERS Safety Report 23847927 (Version 1)
Quarter: 2024Q2

REPORT INFORMATION
  Report Type: Report from Study
  Country: JP (occurrence: JP)
  Receive Date: 20240513
  Receipt Date: 20240513
  Transmission Date: 20240715
  Serious: Yes (Death, Hospitalization, Other)
  Sender: FDA-Public Use
  Company Number: JP-TAKEDA-2024TJP006627

PATIENT
  Age: 65 Year
  Sex: Male
  Weight: 52.7 kg

DRUGS (3)
  1. CABOMETYX [Suspect]
     Active Substance: CABOZANTINIB S-MALATE
     Indication: Renal cell carcinoma
     Dosage: 40 MG, QD
     Route: 065
     Dates: start: 20230928, end: 20231109
  2. CABOMETYX [Suspect]
     Active Substance: CABOZANTINIB S-MALATE
     Dosage: UNK
     Route: 065
     Dates: start: 20231124, end: 20240304
  3. NIVOLUMAB [Suspect]
     Active Substance: NIVOLUMAB
     Indication: Renal cell carcinoma
     Dosage: 240 MG
     Route: 065
     Dates: start: 20230928, end: 20240301

REACTIONS (3)
  - Pulmonary haemorrhage [Fatal]
  - Colitis [Fatal]
  - Hypoalbuminaemia [Fatal]

NARRATIVE: CASE EVENT DATE: 20240304
